FAERS Safety Report 5352464-7 (Version None)
Quarter: 2007Q2

REPORT INFORMATION
  Report Type: 
  Country: None (occurrence: None)
  Receive Date: 20070611
  Receipt Date: 20070607
  Transmission Date: 20071010
  Serious: Yes (Other)
  Sender: FDA-Public Use
  Company Number: A0654891A

PATIENT
  Age: 57 Year
  Sex: Male

DRUGS (15)
  1. AVANDIA [Suspect]
     Indication: DRUG USE FOR UNKNOWN INDICATION
     Dosage: 4MG TWICE PER DAY
     Route: 065
  2. DIAMICRON [Suspect]
     Indication: DRUG USE FOR UNKNOWN INDICATION
     Dosage: 120MG TWICE PER DAY
     Route: 065
  3. METFORMIN HCL [Suspect]
     Indication: DRUG USE FOR UNKNOWN INDICATION
     Dosage: 500MG FOUR TIMES PER DAY
     Route: 048
  4. TEQUIN [Suspect]
     Indication: DRUG USE FOR UNKNOWN INDICATION
     Dosage: 400MG PER DAY
     Route: 048
  5. ASPIRIN [Concomitant]
  6. COLACE [Concomitant]
  7. DITROPAN [Concomitant]
  8. ELAVIL [Concomitant]
  9. FENOFIBRATE [Concomitant]
  10. FUROSEMIDE [Concomitant]
  11. IMOVANE [Concomitant]
  12. LIORESAL [Concomitant]
  13. VENTOLIN [Concomitant]
     Route: 055
  14. ASCORBIC ACID [Concomitant]
  15. ZANAFLEX [Concomitant]

REACTIONS (2)
  - DRUG INTERACTION [None]
  - HYPOGLYCAEMIA [None]
